FAERS Safety Report 11913589 (Version 1)
Quarter: 2016Q1

REPORT INFORMATION
  Report Type: Spontaneous
  Country: US (occurrence: US)
  Receive Date: 20160113
  Receipt Date: 20160113
  Transmission Date: 20160526
  Serious: No
  Sender: FDA-Public Use
  Company Number: US-PFIZER INC-2015450781

PATIENT
  Age: 67 Year
  Sex: Female

DRUGS (5)
  1. IBRANCE [Suspect]
     Active Substance: PALBOCICLIB
     Dosage: 100 MG, DAILY (100MG DAILY FOR 21 DAYS)
     Dates: start: 20151224
  2. LETROZOLE. [Concomitant]
     Active Substance: LETROZOLE
     Dosage: 2.5 MG, UNK
     Dates: start: 20151024
  3. XGEVA [Concomitant]
     Active Substance: DENOSUMAB
     Dosage: UNK, MONTHLY
     Dates: start: 20151002
  4. IBRANCE [Suspect]
     Active Substance: PALBOCICLIB
     Indication: BREAST CANCER
     Dosage: (125 MG DAILY FOR 21 DAYS OFF 1 WEEK)125 MG, CYCLIC
     Dates: start: 20151022
  5. IBRANCE [Suspect]
     Active Substance: PALBOCICLIB
     Indication: METASTASES TO BONE
     Dosage: UNK (125 DAILY FOR 21 DAYS OFF 2 WKS)
     Dates: start: 20151116

REACTIONS (2)
  - White blood cell count decreased [Not Recovered/Not Resolved]
  - Product use issue [Unknown]
